FAERS Safety Report 11293210 (Version 1)
Quarter: 2015Q3

REPORT INFORMATION
  Report Type: Report from Study
  Country: ES (occurrence: ES)
  Receive Date: 20150722
  Receipt Date: 20150722
  Transmission Date: 20151125
  Serious: Yes (Life-Threatening, Hospitalization)
  Sender: FDA-Public Use
  Company Number: ES-PFIZER INC-2015239152

PATIENT
  Age: 78 Year
  Sex: Female

DRUGS (10)
  1. TRANKIMAZIN [Suspect]
     Active Substance: ALPRAZOLAM
     Dosage: 0.25 MG, 1X/DAY (IN THE MORNINGS)
     Route: 048
  2. NOVOMIX [Suspect]
     Active Substance: INSULIN ASPART
     Dosage: UNK
     Dates: start: 20150124
  3. SINTROM [Concomitant]
     Active Substance: ACENOCOUMAROL
     Dosage: 2 MG, 1X/DAY (HALF A DOSAGE FORM IN THE EVENINGS)
  4. DOCLIS RETARD [Concomitant]
     Dosage: 240 MG, 1X/DAY (IN THE MORNINGS)
  5. NOVOMIX [Suspect]
     Active Substance: INSULIN ASPART
     Dosage: 3X/DAY; 22 (MORNINGS)-18 (NOON)-18 (EVENING)
     Route: 058
  6. TRANKIMAZIN [Suspect]
     Active Substance: ALPRAZOLAM
     Dosage: 5 G, SINGLE
     Dates: start: 20150124
  7. APOCARD [Concomitant]
     Active Substance: FLECAINIDE ACETATE
     Dosage: 100 MG, 1X/DAY (IN THE MORNINGS)
  8. LOSARTAN. [Concomitant]
     Active Substance: LOSARTAN
     Dosage: 50 MG, 1X/DAY (AT NOON)
  9. OMEPRAZOLE. [Concomitant]
     Active Substance: OMEPRAZOLE
     Dosage: 20 MG, 1X/DAY (IN THE MORNINGS)
  10. ZARATOR [Concomitant]
     Active Substance: ATORVASTATIN CALCIUM
     Dosage: 20 MG 1X/DAY (MORNINGS)

REACTIONS (2)
  - Toxicity to various agents [Recovered/Resolved]
  - Hypoglycaemic coma [Recovered/Resolved]

NARRATIVE: CASE EVENT DATE: 20150125
